FAERS Safety Report 4808439-7 (Version None)
Quarter: 2005Q4

REPORT INFORMATION
  Report Type: 
  Country: None (occurrence: None)
  Receive Date: 20051021
  Receipt Date: 20041203
  Transmission Date: 20060501
  Serious: No
  Sender: FDA-Public Use
  Company Number: JP_041205405

PATIENT
  Age: 37 Year
  Sex: Female

DRUGS (5)
  1. ZYPREXA [Suspect]
     Indication: SCHIZOPHRENIA
     Dosage: 10 MG DAILY
     Dates: end: 20041211
  2. LEVOTOMIN (LEVOMEPROMAZINE MALEATE) [Concomitant]
  3. TASMOLIN (BIPERIDEN) [Concomitant]
  4. DEPAS (ETIZOLAM) [Concomitant]
  5. TOLEDOMIN (MILNACIPRAN HYDROCHLORIDE) [Concomitant]

REACTIONS (2)
  - PYREXIA [None]
  - WHITE BLOOD CELL COUNT INCREASED [None]
